FAERS Safety Report 9707516 (Version 3)
Quarter: 2023Q4

REPORT INFORMATION
  Report Type: Spontaneous
  Country: US (occurrence: US)
  Receive Date: 20131125
  Receipt Date: 20231117
  Transmission Date: 20240109
  Serious: No
  Sender: FDA-Public Use
  Company Number: US-TEVA-375448USA

PATIENT
  Age: 19 Year
  Sex: Female

DRUGS (1)
  1. PARAGARD T 380A [Suspect]
     Active Substance: COPPER
     Indication: Contraception
     Route: 015
     Dates: start: 20121019, end: 20121210

REACTIONS (3)
  - Nausea [Unknown]
  - Abdominal pain [Unknown]
  - Device expulsion [Recovered/Resolved]
